FAERS Safety Report 9787981 (Version 2)
Quarter: 2014Q2

REPORT INFORMATION
  Report Type: Spontaneous
  Country: GB (occurrence: GB)
  Receive Date: 20131230
  Receipt Date: 20140527
  Transmission Date: 20141212
  Serious: Yes (Hospitalization, Other)
  Sender: FDA-Public Use
  Company Number: GB-DRREDDYS-GER/UKI/13/0036716

PATIENT
  Age: 80 Year
  Sex: Male

DRUGS (4)
  1. PIOGLITAZONE [Suspect]
     Indication: DIABETES MELLITUS
     Dates: start: 201301, end: 201305
  2. PIOGLITAZONE [Suspect]
     Dates: start: 201308, end: 201311
  3. PIOGLITAZONE [Suspect]
     Dates: end: 201402
  4. FLUOXETINE [Concomitant]
     Indication: DEPRESSION

REACTIONS (13)
  - Hallucination, auditory [Unknown]
  - Confusional state [Unknown]
  - Prescribed overdose [Unknown]
  - Malaise [Unknown]
  - General physical health deterioration [Unknown]
  - Disturbance in attention [Unknown]
  - Sleep talking [Unknown]
  - Campylobacter gastroenteritis [Unknown]
  - Fall [Unknown]
  - Off label use [Unknown]
  - Orthostatic hypotension [Unknown]
  - Mobility decreased [Unknown]
  - Apathy [Unknown]
